FAERS Safety Report 5370929-9 (Version None)
Quarter: 2007Q2

REPORT INFORMATION
  Report Type: 
  Country: None (occurrence: None)
  Receive Date: 20070626
  Receipt Date: 20070614
  Transmission Date: 20071010
  Serious: Yes (Hospitalization, Other)
  Sender: FDA-Public Use
  Company Number: US-PFIZER INC-2005099285

PATIENT
  Sex: Male
  Weight: 81.2 kg

DRUGS (8)
  1. SU-011,248 [Suspect]
     Indication: RENAL CANCER METASTATIC
     Route: 048
  2. PERCOCET [Concomitant]
     Indication: ABDOMINAL PAIN
     Route: 048
  3. SODIUM POLYSTYRENE SULFONATE [Concomitant]
     Indication: HYPERKALAEMIA
     Route: 048
  4. TUMS [Concomitant]
     Route: 048
  5. COMPAZINE [Concomitant]
     Indication: NAUSEA
     Route: 048
  6. VITAMIN CAP [Concomitant]
     Route: 048
  7. COLACE [Concomitant]
     Route: 048
  8. ACETYLSALICYLIC ACID SRT [Concomitant]

REACTIONS (19)
  - ABDOMINAL DISTENSION [None]
  - ABDOMINAL PAIN [None]
  - ADRENAL NEOPLASM [None]
  - ANAEMIA [None]
  - ASCITES [None]
  - ASTHENIA [None]
  - BLOOD AMYLASE INCREASED [None]
  - BLOOD OSMOLARITY DECREASED [None]
  - BLOOD URIC ACID INCREASED [None]
  - DEPRESSIVE SYMPTOM [None]
  - FATIGUE [None]
  - HAEMOGLOBIN DECREASED [None]
  - HYPERKALAEMIA [None]
  - HYPONATRAEMIA [None]
  - LIPASE INCREASED [None]
  - MALAISE [None]
  - NIGHT SWEATS [None]
  - PYREXIA [None]
  - WEIGHT DECREASED [None]
